FAERS Safety Report 13312829 (Version 2)
Quarter: 2017Q3

REPORT INFORMATION
  Report Type: Spontaneous
  Country: US (occurrence: US)
  Receive Date: 20170309
  Receipt Date: 20170811
  Transmission Date: 20171127
  Serious: Yes (Other)
  Sender: FDA-Public Use
  Company Number: US-INCYTE CORPORATION-2017IN001638

PATIENT

DRUGS (1)
  1. JAKAFI [Suspect]
     Active Substance: RUXOLITINIB
     Indication: MYELOFIBROSIS
     Dosage: 10MG QAM/15 MG QPM
     Route: 048
     Dates: start: 20121020

REACTIONS (4)
  - Platelet count decreased [Unknown]
  - Paraesthesia [Unknown]
  - Chronic lymphocytic leukaemia [Unknown]
  - Inguinal hernia [Unknown]
